FAERS Safety Report 14325849 (Version 2)
Quarter: 2017Q4

REPORT INFORMATION
  Report Type: Spontaneous
  Country: AZ (occurrence: AZ)
  Receive Date: 20171226
  Receipt Date: 20171229
  Transmission Date: 20180321
  Serious: Yes (Hospitalization, Other)
  Sender: FDA-Public Use
  Company Number: AZ-NOVOPROD-578275

PATIENT
  Age: 70 Year
  Sex: Female
  Weight: 88 kg

DRUGS (1)
  1. ACTRAPID [Suspect]
     Active Substance: INSULIN HUMAN
     Indication: TYPE 2 DIABETES MELLITUS
     Dosage: 30 U, QD (10 - 10 - 10)
     Route: 058

REACTIONS (2)
  - Femur fracture [Unknown]
  - Blood glucose increased [Unknown]

NARRATIVE: CASE EVENT DATE: 201710
